FAERS Safety Report 19882846 (Version 2)
Quarter: 2021Q3

REPORT INFORMATION
  Report Type: Report from Study
  Country: None (occurrence: SE)
  Receive Date: 20210924
  Receipt Date: 20210928
  Transmission Date: 20211014
  Serious: Yes (Hospitalization, Other)
  Sender: FDA-Public Use
  Company Number: SE-ABBVIE-21K-150-4090405-00

PATIENT
  Age: 78 Year
  Sex: Female

DRUGS (2)
  1. DUODOPA [Suspect]
     Active Substance: CARBIDOPA\LEVODOPA
     Dosage: MORNING DOSE INCREASED FROM 3.5ML TO 4ML. THERAPY DURATION: REMAINS AT 16H
     Route: 050
     Dates: start: 20210920
  2. DUODOPA [Suspect]
     Active Substance: CARBIDOPA\LEVODOPA
     Indication: PARKINSON^S DISEASE
     Route: 050
     Dates: start: 20170515

REACTIONS (10)
  - Subarachnoid haemorrhage [Not Recovered/Not Resolved]
  - Fungal infection [Unknown]
  - Subdural haematoma [Not Recovered/Not Resolved]
  - Unevaluable event [Not Recovered/Not Resolved]
  - Stoma site erythema [Not Recovered/Not Resolved]
  - Drug ineffective [Recovered/Resolved]
  - Fall [Unknown]
  - Musculoskeletal stiffness [Recovered/Resolved]
  - Skin discolouration [Not Recovered/Not Resolved]
  - Gun shot wound [Not Recovered/Not Resolved]

NARRATIVE: CASE EVENT DATE: 202109
